FAERS Safety Report 7444609-X (Version None)
Quarter: 2011Q2

REPORT INFORMATION
  Report Type: 
  Country: None (occurrence: None)
  Receive Date: 20110426
  Receipt Date: 20110426
  Transmission Date: 20111010
  Serious: No
  Sender: FDA-Public Use
  Company Number: None

PATIENT
  Age: 80 Year
  Sex: Female
  Weight: 113.8529 kg

DRUGS (4)
  1. ZYRTEC [Concomitant]
  2. SYNTHROID [Concomitant]
  3. ANASTROZOLE [Suspect]
     Indication: BREAST CANCER
     Dosage: 1 MG DAILY ORAL
     Route: 048
  4. BENICAR [Concomitant]

REACTIONS (4)
  - PRODUCT SUBSTITUTION ISSUE [None]
  - PELVIC DISCOMFORT [None]
  - OEDEMA PERIPHERAL [None]
  - JOINT SWELLING [None]
